FAERS Safety Report 25001668 (Version 1)
Quarter: 2025Q1

REPORT INFORMATION
  Report Type: Spontaneous
  Country: US (occurrence: US)
  Receive Date: 20250223
  Receipt Date: 20250223
  Transmission Date: 20250408
  Serious: Yes (Hospitalization, Other)
  Sender: COLLEGIUM PHARMACEUTICAL
  Company Number: US-COLLEGIUM PHARMACEUTICAL, INC.-20250201739

PATIENT

DRUGS (2)
  1. XTAMPZA ER [Suspect]
     Active Substance: OXYCODONE
     Indication: Pain
     Route: 048
     Dates: start: 20250204, end: 202502
  2. XTAMPZA ER [Suspect]
     Active Substance: OXYCODONE
     Route: 048
     Dates: start: 202502, end: 202502

REACTIONS (8)
  - Suicidal ideation [Unknown]
  - Rectal haemorrhage [Unknown]
  - Renal failure [Unknown]
  - Abdominal pain [Unknown]
  - Malaise [Unknown]
  - Stress [Unknown]
  - Loss of personal independence in daily activities [Unknown]
  - Drug ineffective [Unknown]

NARRATIVE: CASE EVENT DATE: 20250201
